FAERS Safety Report 4485385-2 (Version None)
Quarter: 2004Q4

REPORT INFORMATION
  Report Type: 
  Country: None (occurrence: None)
  Receive Date: 20041021
  Receipt Date: 20041005
  Transmission Date: 20050328
  Serious: No
  Sender: FDA-Public Use
  Company Number: TPA2004A01213

PATIENT
  Age: 60 Year
  Sex: Female
  Weight: 92.9874 kg

DRUGS (7)
  1. ACTOS [Suspect]
     Indication: DIABETES MELLITUS NON-INSULIN-DEPENDENT
     Dosage: 45 MG, 1 IN 1 D, PER ORAL
     Route: 048
     Dates: start: 20021005
  2. GLUCOVANE (GLIBOMET) (500 MILLIGRAM) [Concomitant]
  3. FUROSEMIDE (FUROSEMIDE) (40 MILLIGRAM) [Concomitant]
  4. TRICOR (FENOFIBRATE) (160 MILLIGRAM) [Concomitant]
  5. KLOR-CON (POTASSIUM CHLORIDE) (15 MILLIEQUIVALENTS) [Concomitant]
  6. DIOVAN (VALSARTAN) (80 MILLIGRAM) [Concomitant]
  7. COMBIVENT [Concomitant]

REACTIONS (2)
  - CATARACT [None]
  - EYE OEDEMA [None]
